FAERS Safety Report 14297275 (Version 3)
Quarter: 2018Q2

REPORT INFORMATION
  Report Type: Spontaneous
  Country: US (occurrence: US)
  Receive Date: 20171218
  Receipt Date: 20180406
  Transmission Date: 20180711
  Serious: No
  Sender: FDA-Public Use
  Company Number: US-BAYER-2017-239400

PATIENT
  Age: 74 Year
  Sex: Male
  Weight: 75 kg

DRUGS (3)
  1. MIRALAX [Suspect]
     Active Substance: POLYETHYLENE GLYCOL 3350
     Indication: GASTROINTESTINAL DISORDER
     Dosage: 1 DF, QD
     Route: 048
  2. MIRALAX [Suspect]
     Active Substance: POLYETHYLENE GLYCOL 3350
     Indication: CONSTIPATION
     Dosage: 1 DF, QD
     Route: 048
  3. XANAX [Concomitant]
     Active Substance: ALPRAZOLAM
     Dosage: UNK

REACTIONS (9)
  - Incorrect drug administration duration [Unknown]
  - Product prescribing issue [Unknown]
  - Poor quality drug administered [Unknown]
  - Defaecation urgency [Not Recovered/Not Resolved]
  - Expired product administered [Unknown]
  - Product use in unapproved indication [Unknown]
  - Product physical consistency issue [Unknown]
  - Poor quality drug administered [Unknown]
  - Off label use [Unknown]

NARRATIVE: CASE EVENT DATE: 201712
